FAERS Safety Report 16455357 (Version 1)
Quarter: 2019Q2

REPORT INFORMATION
  Report Type: Spontaneous
  Country: ES (occurrence: ES)
  Receive Date: 20190620
  Receipt Date: 20190620
  Transmission Date: 20190711
  Serious: Yes (Hospitalization)
  Sender: FDA-Public Use
  Company Number: ES-TEVA-2019-ES-1066433

PATIENT
  Age: 57 Year
  Sex: Male

DRUGS (2)
  1. TRIUMEQ [Suspect]
     Active Substance: ABACAVIR SULFATE\DOLUTEGRAVIR SODIUM\LAMIVUDINE
     Indication: ASYMPTOMATIC HIV INFECTION
     Route: 048
     Dates: start: 201901
  2. QUETIAPINA (1136A) [Suspect]
     Active Substance: QUETIAPINE
     Route: 048
     Dates: start: 20170114

REACTIONS (1)
  - Pulmonary embolism [Recovering/Resolving]

NARRATIVE: CASE EVENT DATE: 20190417
